FAERS Safety Report 22135417 (Version 1)
Quarter: 2023Q1

REPORT INFORMATION
  Report Type: Other
  Country: None (occurrence: US)
  Receive Date: 20230324
  Receipt Date: 20230324
  Transmission Date: 20230418
  Serious: No
  Sender: FDA-Public Use
  Company Number: US-Graviti Pharmaceuticals Private Limited-2139499

PATIENT

DRUGS (1)
  1. BUPROPION HYDROCHLORIDE EXTENDED RELEASE [Suspect]
     Active Substance: BUPROPION HYDROCHLORIDE
     Indication: Product used for unknown indication
     Route: 065
     Dates: start: 202212

REACTIONS (4)
  - Fatigue [Unknown]
  - Feeling abnormal [Unknown]
  - Drug ineffective [Unknown]
  - Product substitution issue [Unknown]

NARRATIVE: CASE EVENT DATE: 20221201
